FAERS Safety Report 5806441-X (Version None)
Quarter: 2008Q3

REPORT INFORMATION
  Report Type: 
  Country: None (occurrence: None)
  Receive Date: 20080710
  Receipt Date: 20080630
  Transmission Date: 20090109
  Serious: Yes (Death)
  Sender: FDA-Public Use
  Company Number: KR-PFIZER INC-2008050570

PATIENT
  Sex: Male
  Weight: 38 kg

DRUGS (26)
  1. LINEZOLID [Suspect]
     Indication: PNEUMONIA
     Dosage: FREQ:BID: 12 HOURS
     Route: 042
     Dates: start: 20080610, end: 20080614
  2. ACETYLCYSTEINE [Concomitant]
     Dosage: DAILY DOSE:800MG-FREQ:ONCE
     Route: 042
     Dates: start: 20080614, end: 20080614
  3. SOYA OIL [Concomitant]
     Dosage: DAILY DOSE:250ML-FREQ:QD
     Route: 042
     Dates: start: 20080608, end: 20080616
  4. BROMHEXINE HYDROCHLORIDE [Concomitant]
     Dosage: FREQ:4 MG TID
     Route: 042
     Dates: start: 20080608, end: 20080616
  5. AMINO ACIDS [Concomitant]
     Dosage: DAILY DOSE:500MG-FREQ:QD
     Route: 042
     Dates: start: 20080609, end: 20080615
  6. CIPROFLOXACIN [Concomitant]
     Dosage: FREQ:200 MG BID
     Route: 042
     Dates: start: 20080606, end: 20080610
  7. CHLORPHENIRAMINE MALEATE [Concomitant]
     Dosage: TEXT:(PRN) 4 MG
     Route: 042
     Dates: start: 20080610, end: 20080615
  8. DOPAMINE HCL [Concomitant]
     Dosage: DAILY DOSE:800MG-FREQ:QD
     Route: 042
     Dates: start: 20080606, end: 20080615
  9. FAMOTIDINE [Concomitant]
     Route: 042
     Dates: start: 20080607, end: 20080616
  10. DOPAMINE HCL IN 5% DEXTROSE [Concomitant]
     Dosage: FREQ:800 MG MIXED WITH 5% DEXTROSE 500 ML QD
     Route: 042
     Dates: start: 20080610, end: 20080615
  11. FUROSEMIDE [Concomitant]
     Dosage: DAILY DOSE:20MG-FREQ:QD
     Route: 042
     Dates: start: 20080610, end: 20080613
  12. FUROSEMIDE [Concomitant]
     Dosage: DAILY DOSE:10MG-FREQ:ONCE
     Route: 042
     Dates: start: 20080615, end: 20080615
  13. INSULIN HUMAN [Concomitant]
     Dosage: DAILY DOSE:.5ML-FREQ:ONCE
     Route: 058
     Dates: start: 20080608, end: 20080608
  14. POTASSIUM CHLORIDE [Concomitant]
     Dosage: FREQ:20 ML BID
     Route: 042
     Dates: start: 20080606, end: 20080616
  15. ALL OTHER THERAPEUTIC PRODUCTS [Concomitant]
     Dosage: DAILY DOSE:10ML-FREQ:QD
     Route: 042
     Dates: start: 20080607, end: 20080615
  16. MEROPENEM [Concomitant]
     Dosage: FREQ:500 MG TID
     Route: 042
     Dates: start: 20080611, end: 20080616
  17. MIDAZOLAM HCL [Concomitant]
     Dosage: DAILY DOSE:50MG-FREQ:ONCE
     Route: 042
     Dates: start: 20080608, end: 20080608
  18. SODIUM CHLORIDE 0.9% [Concomitant]
     Dosage: FREQ:40 ML BID
     Route: 042
     Dates: start: 20080606, end: 20080616
  19. PROPACETAMOL HYDROCHLORIDE [Concomitant]
     Dosage: DAILY DOSE:1GRAM-FREQ:ONCE
     Route: 042
     Dates: start: 20080610, end: 20080610
  20. PIPERACILLIN AND TAZOBACTAM [Concomitant]
     Dosage: FREQ:2.25 G QID
     Route: 042
     Dates: start: 20080606, end: 20080610
  21. TEICOPLANIN [Concomitant]
     Dosage: DAILY DOSE:200MG-FREQ:ONCE
     Route: 042
     Dates: start: 20080610, end: 20080610
  22. VECURONIUM BROMIDE [Concomitant]
     Dosage: DAILY DOSE:50MG-FREQ:QD
     Route: 042
     Dates: start: 20080608, end: 20080614
  23. IMMUNE GLOBULIN (HUMAN) [Concomitant]
     Dosage: DAILY DOSE:100MG-FREQ:QD
     Route: 042
     Dates: start: 20080610, end: 20080616
  24. PHYTONADIONE [Concomitant]
     Dosage: DAILY DOSE:10MG-FREQ:ONCE
     Route: 042
     Dates: start: 20080613, end: 20080613
  25. HYALURONATE SODIUM [Concomitant]
     Dosage: DAILY DOSE:5MG-FREQ:QD
     Dates: start: 20080608, end: 20080615
  26. OXYTETRACYCLINE [Concomitant]
     Dosage: DAILY DOSE:5MG-FREQ:ONCE
     Dates: start: 20080615, end: 20080615

REACTIONS (1)
  - SEPTIC SHOCK [None]
